FAERS Safety Report 14909033 (Version 2)
Quarter: 2018Q2

REPORT INFORMATION
  Report Type: Spontaneous
  Country: US (occurrence: US)
  Receive Date: 20180517
  Receipt Date: 20180521
  Transmission Date: 20180711
  Serious: No
  Sender: FDA-Public Use
  Company Number: US-PFIZER INC-2018199407

PATIENT
  Age: 7 Year
  Sex: Female
  Weight: 25.4 kg

DRUGS (1)
  1. QUILLICHEW ER [Suspect]
     Active Substance: METHYLPHENIDATE HYDROCHLORIDE
     Indication: ATTENTION DEFICIT/HYPERACTIVITY DISORDER
     Dosage: 20 MG, DAILY (HALF TABLET BY MOUTH ONCE IN THE MORNING AND ONCE AFTER SCHOOL)
     Route: 048
     Dates: start: 20180430, end: 20180511

REACTIONS (3)
  - Anxiety [Recovered/Resolved]
  - Drug ineffective [Unknown]
  - Crying [Recovered/Resolved]

NARRATIVE: CASE EVENT DATE: 2018
